FAERS Safety Report 25283706 (Version 1)
Quarter: 2025Q2

REPORT INFORMATION
  Report Type: Spontaneous
  Country: US (occurrence: None)
  Receive Date: 20250508
  Receipt Date: 20250508
  Transmission Date: 20250717
  Serious: Yes (Other)
  Sender: FDA-CTU
  Company Number: None

PATIENT
  Age: 41 Year
  Sex: Female

DRUGS (1)
  1. KESIMPTA [Suspect]
     Active Substance: OFATUMUMAB
     Route: 058
     Dates: start: 20230831

REACTIONS (4)
  - Abdominal distension [None]
  - Abdominal pain upper [None]
  - Dyspepsia [None]
  - Adverse drug reaction [None]

NARRATIVE: CASE EVENT DATE: 20250410
